FAERS Safety Report 20731377 (Version 12)
Quarter: 2025Q1

REPORT INFORMATION
  Report Type: Report from Study
  Country: US (occurrence: US)
  Receive Date: 20220420
  Receipt Date: 20250327
  Transmission Date: 20250409
  Serious: Yes (Other)
  Sender: TAKEDA
  Company Number: US-TAKEDA-2022TUS022324

PATIENT
  Sex: Female
  Weight: 129 kg

DRUGS (48)
  1. GLASSIA [Suspect]
     Active Substance: .ALPHA.1-PROTEINASE INHIBITOR HUMAN
     Indication: Alpha-1 antitrypsin deficiency
     Dosage: 60 MILLIGRAM/KILOGRAM, 1/WEEK
     Dates: start: 20211216
  2. GLASSIA [Suspect]
     Active Substance: .ALPHA.1-PROTEINASE INHIBITOR HUMAN
     Dosage: 60 MILLIGRAM/KILOGRAM, 1/WEEK
  3. EPINEPHRINE [Concomitant]
     Active Substance: EPINEPHRINE
  4. OMEPRAZOLE [Concomitant]
     Active Substance: OMEPRAZOLE
  5. CELEBREX [Concomitant]
     Active Substance: CELECOXIB
  6. SPIRIVA RESPIMAT [Concomitant]
     Active Substance: TIOTROPIUM BROMIDE
  7. ROFLUMILAST [Concomitant]
     Active Substance: ROFLUMILAST
  8. ZYRTEC [Concomitant]
     Active Substance: CETIRIZINE HYDROCHLORIDE
  9. DULOXETINE HYDROCHLORIDE [Concomitant]
     Active Substance: DULOXETINE HYDROCHLORIDE
  10. VITAMIN C [Concomitant]
     Active Substance: ASCORBIC ACID
  11. CARVEDILOL [Concomitant]
     Active Substance: CARVEDILOL
  12. SINGULAIR [Concomitant]
     Active Substance: MONTELUKAST SODIUM
  13. HEPARIN [Concomitant]
     Active Substance: HEPARIN SODIUM
  14. SODIUM CHLORIDE [Concomitant]
     Active Substance: SODIUM CHLORIDE
  15. VITAMIN E [Concomitant]
     Active Substance: .ALPHA.-TOCOPHEROL
  16. ALBUTEROL SULFATE [Concomitant]
     Active Substance: ALBUTEROL SULFATE
  17. LOSARTAN POTASSIUM [Concomitant]
     Active Substance: LOSARTAN POTASSIUM
  18. VITAMINS [Concomitant]
     Active Substance: VITAMINS
  19. ALBUTEROL SULFATE [Concomitant]
     Active Substance: ALBUTEROL SULFATE
  20. FLUTICASONE PROPIONATE [Concomitant]
     Active Substance: FLUTICASONE PROPIONATE
  21. OXYGEN [Concomitant]
     Active Substance: OXYGEN
  22. CALCIUM [Concomitant]
     Active Substance: CALCIUM
  23. DIPHENHYDRAMINE HYDROCHLORIDE [Concomitant]
     Active Substance: DIPHENHYDRAMINE HYDROCHLORIDE
  24. Lmx [Concomitant]
  25. PRAMIPEXOLE DIHYDROCHLORIDE [Concomitant]
     Active Substance: PRAMIPEXOLE DIHYDROCHLORIDE
  26. EVENING PRIMROSE OIL\HERBALS [Concomitant]
     Active Substance: EVENING PRIMROSE OIL\HERBALS
  27. DIPHENHYDRAMINE [Concomitant]
     Active Substance: DIPHENHYDRAMINE
  28. SYMBICORT [Concomitant]
     Active Substance: BUDESONIDE\FORMOTEROL FUMARATE DIHYDRATE
  29. ONDANSETRON HYDROCHLORIDE [Concomitant]
     Active Substance: ONDANSETRON HYDROCHLORIDE
  30. VITAMIN D3 [Concomitant]
     Active Substance: CHOLECALCIFEROL
  31. CALCIUM CITRATE [Concomitant]
     Active Substance: CALCIUM CITRATE
  32. FIBERCON [Concomitant]
     Active Substance: CALCIUM POLYCARBOPHIL
  33. TRAMADOL HCL [Concomitant]
     Active Substance: TRAMADOL HYDROCHLORIDE
  34. GABAPENTIN [Concomitant]
     Active Substance: GABAPENTIN
  35. TIZANIDINE HYDROCHLORIDE [Concomitant]
     Active Substance: TIZANIDINE HYDROCHLORIDE
  36. CELECOXIB [Concomitant]
     Active Substance: CELECOXIB
  37. AMBIEN [Concomitant]
     Active Substance: ZOLPIDEM TARTRATE
  38. LISINOPRIL AND HYDROCHLOROTHIAZIDE [Concomitant]
     Active Substance: HYDROCHLOROTHIAZIDE\LISINOPRIL
  39. HERBALS\TURMERIC [Concomitant]
     Active Substance: HERBALS\TURMERIC
  40. TOPAMAX [Concomitant]
     Active Substance: TOPIRAMATE
  41. ALLEGRA-D [Concomitant]
     Active Substance: FEXOFENADINE HYDROCHLORIDE\PSEUDOEPHEDRINE HYDROCHLORIDE
  42. PRAMIPEXOLE [Concomitant]
     Active Substance: PRAMIPEXOLE
  43. LISINOPRIL [Concomitant]
     Active Substance: LISINOPRIL
  44. ZINC [Concomitant]
     Active Substance: ZINC
  45. TRAZODONE HCL [Concomitant]
     Active Substance: TRAZODONE HYDROCHLORIDE
  46. AMLODIPINE BESYLATE [Concomitant]
     Active Substance: AMLODIPINE BESYLATE
  47. WIXELA INHUB [Concomitant]
     Active Substance: FLUTICASONE PROPIONATE\SALMETEROL XINAFOATE
  48. ALLEGRA ALLERGY [Concomitant]
     Active Substance: FEXOFENADINE HYDROCHLORIDE

REACTIONS (16)
  - Dyspnoea at rest [Unknown]
  - Gastrointestinal infection [Unknown]
  - Hypotension [Unknown]
  - Dermatitis contact [Unknown]
  - Product use issue [Unknown]
  - Insurance issue [Unknown]
  - Dyspnoea exertional [Unknown]
  - COVID-19 [Unknown]
  - Contusion [Unknown]
  - Fall [Unknown]
  - Wheezing [Unknown]
  - Sleep disorder [Unknown]
  - Myalgia [Unknown]
  - Lung disorder [Unknown]
  - Dizziness [Unknown]
  - Dyspnoea [Unknown]
